FAERS Safety Report 9386484 (Version 1)
Quarter: 2013Q3

REPORT INFORMATION
  Report Type: Spontaneous
  Country: FR (occurrence: FR)
  Receive Date: 20130708
  Receipt Date: 20130708
  Transmission Date: 20140515
  Serious: Yes (Death, Hospitalization)
  Sender: FDA-Public Use
  Company Number: FR-BRISTOL-MYERS SQUIBB COMPANY-19068261

PATIENT
  Age: 79 Year
  Sex: Female

DRUGS (11)
  1. APROVEL TABS 150 MG [Suspect]
     Indication: HYPERTENSION
     Dates: end: 20130415
  2. COAPROVEL TABS 150MG/12.5MG [Suspect]
     Indication: HYPERTENSION
     Dates: end: 20130415
  3. DALTEPARIN SODIUM [Suspect]
     Dosage: ANTI XA/0.2ML
     Route: 058
     Dates: start: 20130409, end: 20130415
  4. TRANXENE [Suspect]
     Dosage: HARD CAPSULE
     Route: 048
     Dates: end: 20130415
  5. VOLTARENE EMULGEL [Concomitant]
     Indication: PAIN
     Dosage: 1DF=1% GEL
     Route: 061
  6. AMYCOR [Concomitant]
     Dosage: 1DF=1% CREAM
     Route: 061
  7. SMECTA [Concomitant]
  8. SECTRAL [Concomitant]
     Indication: HYPERTENSION
     Route: 048
  9. PARACETAMOL [Concomitant]
     Indication: PAIN
  10. OXYNORM [Concomitant]
     Indication: PAIN
     Dosage: HARD CAPSULES
  11. PHLOROGLUCINOL [Concomitant]
     Indication: PAIN

REACTIONS (5)
  - Hyperkalaemia [Fatal]
  - Renal failure acute [Fatal]
  - Dehydration [Fatal]
  - Anaemia [Fatal]
  - Femur fracture [Recovered/Resolved]
